FAERS Safety Report 15798112 (Version 4)
Quarter: 2019Q3

REPORT INFORMATION
  Report Type: Report from Study
  Country: US (occurrence: US)
  Receive Date: 20190108
  Receipt Date: 20190917
  Transmission Date: 20191004
  Serious: No
  Sender: FDA-Public Use
  Company Number: PHEH2019US000975

PATIENT
  Age: 65 Year
  Sex: Female

DRUGS (1)
  1. GILENYA [Suspect]
     Active Substance: FINGOLIMOD HYDROCHLORIDE
     Indication: MULTIPLE SCLEROSIS
     Dosage: 0.5 MG, QD
     Route: 048
     Dates: start: 20180201

REACTIONS (4)
  - Arthritis [Unknown]
  - Exercise tolerance decreased [Unknown]
  - Musculoskeletal pain [Recovering/Resolving]
  - Scoliosis [Unknown]

NARRATIVE: CASE EVENT DATE: 20181126
